FAERS Safety Report 17545499 (Version 3)
Quarter: 2020Q2

REPORT INFORMATION
  Report Type: Spontaneous
  Country: PT (occurrence: PT)
  Receive Date: 20200316
  Receipt Date: 20200420
  Transmission Date: 20200713
  Serious: Yes (Hospitalization, Other)
  Sender: FDA-Public Use
  Company Number: PT-MYLANLABS-2020M1026464

PATIENT
  Age: 72 Year
  Sex: Female

DRUGS (9)
  1. SILDENAFIL. [Suspect]
     Active Substance: SILDENAFIL
     Dosage: 25 MILLIGRAM, QD
     Route: 065
  2. SILDENAFIL. [Suspect]
     Active Substance: SILDENAFIL
     Dosage: 150 MILLIGRAM, QD (50 MG, TID)
     Route: 065
  3. BOSENTAN. [Suspect]
     Active Substance: BOSENTAN
     Indication: PULMONARY ARTERIAL HYPERTENSION
     Dosage: 62.5 MG TWICE DAILY
     Route: 065
  4. SILDENAFIL. [Suspect]
     Active Substance: SILDENAFIL
     Dosage: 25 MILLIGRAM, QD
     Route: 065
  5. SILDENAFIL. [Suspect]
     Active Substance: SILDENAFIL
     Indication: PULMONARY ARTERIAL HYPERTENSION
     Dosage: 50 MILLIGRAM, QD
     Route: 065
  6. BOSENTAN. [Suspect]
     Active Substance: BOSENTAN
     Dosage: 125 MILLIGRAM, QD (62.5 MG, BID)
     Route: 048
  7. BOSENTAN. [Suspect]
     Active Substance: BOSENTAN
     Dosage: 62.5 MILLIGRAM, QD
     Route: 065
  8. SILDENAFIL. [Suspect]
     Active Substance: SILDENAFIL
     Dosage: 75 MILLIGRAM, QD (25 MG, TID)
     Route: 065
  9. SILDENAFIL. [Suspect]
     Active Substance: SILDENAFIL
     Dosage: 75 MILLIGRAM, QD (25 MG, TID)
     Route: 065

REACTIONS (12)
  - Pleural effusion [Unknown]
  - Fatigue [Unknown]
  - Pleuritic pain [Unknown]
  - Pulmonary veno-occlusive disease [Unknown]
  - Lung opacity [Unknown]
  - Lymphadenopathy mediastinal [Unknown]
  - Dyspnoea [Unknown]
  - Orthopnoea [Unknown]
  - Hilar lymphadenopathy [Unknown]
  - Hypoxia [Unknown]
  - Acute pulmonary oedema [Recovering/Resolving]
  - Cardiac septal hypertrophy [Unknown]
